FAERS Safety Report 13512332 (Version 3)
Quarter: 2020Q1

REPORT INFORMATION
  Report Type: Report from Study
  Country: JP (occurrence: JP)
  Receive Date: 20170504
  Receipt Date: 20200129
  Transmission Date: 20200409
  Serious: Yes (Other)
  Sender: FDA-Public Use
  Company Number: JP-ROCHE-1925671

PATIENT

DRUGS (6)
  1. CARBOPLATIN. [Suspect]
     Active Substance: CARBOPLATIN
     Dosage: MAINTENANCE THERAPY
     Route: 065
  2. CARBOPLATIN. [Suspect]
     Active Substance: CARBOPLATIN
     Indication: NON-SMALL CELL LUNG CANCER
     Dosage: AUC=6 DAY 1
     Route: 065
  3. BEVACIZUMAB. [Suspect]
     Active Substance: BEVACIZUMAB
     Indication: NON-SMALL CELL LUNG CANCER
     Dosage: ON DAY 1
     Route: 065
  4. BEVACIZUMAB. [Suspect]
     Active Substance: BEVACIZUMAB
     Dosage: MAINTENANCE THERAPY
     Route: 065
  5. NAB-PACLITAXEL [Suspect]
     Active Substance: PACLITAXEL
     Indication: NON-SMALL CELL LUNG CANCER
     Dosage: DOSE LEVEL 1: ON DAYS 1 AND 8;  DOSE LEVEL 2: ON DAYS 1, 8 AND 15
     Route: 065
  6. NAB-PACLITAXEL [Suspect]
     Active Substance: PACLITAXEL
     Dosage: MAINTENANCE THERAPY
     Route: 065

REACTIONS (15)
  - Nausea [Unknown]
  - Decreased appetite [Unknown]
  - Oesophageal perforation [Unknown]
  - Neutropenia [Unknown]
  - Hypertension [Unknown]
  - Pneumonitis [Unknown]
  - Vomiting [Unknown]
  - Anaemia [Unknown]
  - Hyponatraemia [Unknown]
  - Skin ulcer [Unknown]
  - Bone marrow failure [Unknown]
  - Thrombocytopenia [Unknown]
  - Febrile neutropenia [Unknown]
  - Liver disorder [Unknown]
  - Fatigue [Unknown]
